FAERS Safety Report 9034151 (Version 1)
Quarter: 2013Q1

REPORT INFORMATION
  Report Type: Spontaneous
  Country: US (occurrence: None)
  Receive Date: 20130116
  Receipt Date: 20130116
  Transmission Date: 20140127
  Serious: Yes (Hospitalization)
  Sender: FDA-Public Use
  Company Number: None

PATIENT
  Age: 59 Year
  Sex: Female
  Weight: 65 kg

DRUGS (1)
  1. CUBICIN [Suspect]
     Route: 041
     Dates: start: 20121227, end: 20121227

REACTIONS (5)
  - Hypersensitivity [None]
  - Rash [None]
  - Dyspnoea [None]
  - Hypotension [None]
  - Pruritus [None]
